FAERS Safety Report 6384932-3 (Version None)
Quarter: 2009Q4

REPORT INFORMATION
  Report Type: 
  Country: None (occurrence: None)
  Receive Date: 20091002
  Receipt Date: 20090914
  Transmission Date: 20100525
  Serious: No
  Sender: FDA-Public Use
  Company Number: A0797107A

PATIENT
  Age: 62 Year
  Sex: Female

DRUGS (24)
  1. REQUIP XL [Suspect]
     Indication: RESTLESS LEGS SYNDROME
     Dosage: 8MG PER DAY
     Route: 048
     Dates: start: 20080801
  2. REQUIP [Suspect]
     Indication: RESTLESS LEGS SYNDROME
     Dosage: 6MG PER DAY
     Route: 048
  3. ALBUTEROL SULFATE AUTOHALER [Concomitant]
  4. ALBUTEROL [Concomitant]
  5. CELEXA [Concomitant]
  6. CENTRUM SILVER [Concomitant]
  7. CYCLOBENZAPRINE HCL [Concomitant]
  8. DYAZIDE [Concomitant]
  9. DURAGESIC-100 [Concomitant]
  10. FEXOFENADINE [Concomitant]
  11. LIDOCAINE [Concomitant]
  12. LORAZEPAM [Concomitant]
  13. MIDRIN [Concomitant]
  14. NYSTATIN [Concomitant]
  15. PANOXYL [Concomitant]
     Route: 061
  16. PROPOXYPHENE HCL CAP [Concomitant]
     Route: 061
  17. SINGULAIR [Concomitant]
  18. VIT B [Concomitant]
  19. VOLTAREN [Concomitant]
  20. HERBAL SUPPLEMENTS [Concomitant]
  21. ARTHRITIS EASE [Concomitant]
  22. LOTRISONE [Concomitant]
  23. SUDAFED 12 HOUR [Concomitant]
  24. UNKNOWN MEDICATION [Concomitant]

REACTIONS (2)
  - NIGHTMARE [None]
  - SOMNOLENCE [None]
